FAERS Safety Report 12375707 (Version 1)
Quarter: 2016Q2

REPORT INFORMATION
  Report Type: Spontaneous
  Country: US (occurrence: None)
  Receive Date: 20160516
  Receipt Date: 20160516
  Transmission Date: 20160815
  Serious: Yes (Disabling)
  Sender: FDA-Public Use
  Company Number: None

PATIENT
  Age: 63 Year
  Sex: Male
  Weight: 86.18 kg

DRUGS (3)
  1. SIMVISTATIN [Concomitant]
     Active Substance: SIMVASTATIN
  2. LISINOPRIL. [Concomitant]
     Active Substance: LISINOPRIL
  3. CIPROFLOXACIN. [Suspect]
     Active Substance: CIPROFLOXACIN
     Indication: PROSTATITIS
     Route: 048
     Dates: start: 20150930, end: 20151008

REACTIONS (10)
  - Pruritus [None]
  - Feeling hot [None]
  - Anxiety [None]
  - Tendon pain [None]
  - Pain in extremity [None]
  - Abasia [None]
  - Burning sensation [None]
  - Hypoaesthesia [None]
  - Back pain [None]
  - Arthralgia [None]

NARRATIVE: CASE EVENT DATE: 20151011
